FAERS Safety Report 10609196 (Version 4)
Quarter: 2015Q4

REPORT INFORMATION
  Report Type: Report from Study
  Country: JP (occurrence: JP)
  Receive Date: 20141126
  Receipt Date: 20151109
  Transmission Date: 20160304
  Serious: Yes (Death, Hospitalization)
  Sender: FDA-Public Use
  Company Number: JP-PFIZER INC-2014321324

PATIENT
  Age: 61 Year
  Sex: Female
  Weight: 40 kg

DRUGS (4)
  1. BROCIN-CODEINE [Concomitant]
     Dosage: 2 ML, 4X/DAY
     Route: 048
     Dates: end: 20140702
  2. CRIZOTINIB [Suspect]
     Active Substance: CRIZOTINIB
     Indication: NON-SMALL CELL LUNG CANCER
     Dosage: 250 MG, 2X/DAY
     Route: 048
     Dates: start: 20140512, end: 20140703
  3. CRIZOTINIB [Suspect]
     Active Substance: CRIZOTINIB
     Dosage: 200 MG, 2X/DAY
     Route: 048
     Dates: start: 20140808, end: 20140903
  4. LOXONIN [Concomitant]
     Active Substance: LOXOPROFEN SODIUM
     Dosage: 60 MG, 2 OR 3 TIMES DAILY
     Route: 048
     Dates: end: 20140610

REACTIONS (3)
  - Hypoalbuminaemia [Not Recovered/Not Resolved]
  - Hypoalbuminaemia [Recovering/Resolving]
  - Gastrointestinal oedema [Recovered/Resolved]

NARRATIVE: CASE EVENT DATE: 201405
